FAERS Safety Report 4349246-1 (Version None)
Quarter: 2004Q2

REPORT INFORMATION
  Report Type: 
  Country: None (occurrence: None)
  Receive Date: 20040428
  Receipt Date: 20040422
  Transmission Date: 20050107
  Serious: Yes (Other)
  Sender: FDA-Public Use
  Company Number: US-MERCK-0404USA02076

PATIENT
  Age: 75 Year
  Sex: Female

DRUGS (4)
  1. PERCOCET [Concomitant]
     Route: 065
  2. FOSAMAX [Suspect]
     Indication: OSTEOPOROSIS
     Route: 048
     Dates: start: 20021001
  3. LIPITOR [Concomitant]
     Route: 065
  4. PLAVIX [Concomitant]
     Route: 065

REACTIONS (3)
  - CEREBROVASCULAR ACCIDENT [None]
  - MUSCULOSKELETAL STIFFNESS [None]
  - NECK PAIN [None]
